FAERS Safety Report 5462697-7 (Version None)
Quarter: 2007Q3

REPORT INFORMATION
  Report Type: 
  Country: None (occurrence: None)
  Receive Date: 20070920
  Receipt Date: 20070223
  Transmission Date: 20080115
  Serious: No
  Sender: FDA-Public Use
  Company Number: A0640559A

PATIENT
  Age: 22 Year

DRUGS (1)
  1. ABREVA [Suspect]
     Dates: start: 20070220

REACTIONS (2)
  - APPLICATION SITE DRYNESS [None]
  - ORAL HERPES [None]
